FAERS Safety Report 10210057 (Version 2)
Quarter: 2014Q2

REPORT INFORMATION
  Report Type: Report from Study
  Country: US (occurrence: US)
  Receive Date: 20140602
  Receipt Date: 20140627
  Transmission Date: 20141212
  Serious: Yes (Hospitalization)
  Sender: FDA-Public Use
  Company Number: US-JNJFOC-20140513687

PATIENT
  Age: 43 Year
  Sex: Female
  Weight: 63.05 kg

DRUGS (1)
  1. USTEKINUMAB [Suspect]
     Indication: PSORIASIS
     Route: 058
     Dates: start: 201004

REACTIONS (1)
  - Radiculopathy [Recovered/Resolved with Sequelae]
